FAERS Safety Report 8950923 (Version 1)
Quarter: 2012Q4

REPORT INFORMATION
  Report Type: Report from Study
  Country: US (occurrence: US)
  Receive Date: 20121207
  Receipt Date: 20121207
  Transmission Date: 20130627
  Serious: Yes (Other)
  Sender: FDA-Public Use
  Company Number: US-ABBOTT-12P-163-0995752-00

PATIENT
  Age: 21 None
  Sex: Male
  Weight: 54.48 kg

DRUGS (1)
  1. HUMIRA [Suspect]
     Indication: CROHN^S DISEASE
     Dosage: only had 2 injections
     Dates: start: 2006, end: 2006

REACTIONS (3)
  - Appendicitis [Not Recovered/Not Resolved]
  - Pyrexia [Recovered/Resolved]
  - Injection site pain [Recovered/Resolved]
